FAERS Safety Report 20503794 (Version 1)
Quarter: 2022Q1

REPORT INFORMATION
  Report Type: Spontaneous
  Country: KE (occurrence: None)
  Receive Date: 20220221
  Receipt Date: 20220221
  Transmission Date: 20220423
  Serious: Yes (Hospitalization)
  Sender: FDA-Public Use
  Company Number: None

PATIENT
  Age: 24 Year
  Sex: Male
  Weight: 58 kg

DRUGS (1)
  1. GENTAMICIN SULFATE [Suspect]
     Active Substance: GENTAMICIN SULFATE
     Indication: Organic erectile dysfunction

REACTIONS (4)
  - Back pain [None]
  - Chest pain [None]
  - Dyspepsia [None]
  - Headache [None]

NARRATIVE: CASE EVENT DATE: 20220125
